FAERS Safety Report 10711266 (Version 8)
Quarter: 2015Q3

REPORT INFORMATION
  Report Type: Report from Study
  Country: US (occurrence: US)
  Receive Date: 20150114
  Receipt Date: 20150825
  Transmission Date: 20151125
  Serious: Yes (Hospitalization, Other)
  Sender: FDA-Public Use
  Company Number: US-AMGEN-USASL2015001466

PATIENT
  Age: 70 Year
  Sex: Female

DRUGS (3)
  1. DEXAMETHASONE. [Concomitant]
     Active Substance: DEXAMETHASONE
     Indication: PLASMA CELL MYELOMA
     Dosage: UNK
  2. COLESTIPOL [Concomitant]
     Active Substance: COLESTIPOL
     Indication: DIARRHOEA
     Dosage: UNK
  3. KYPROLIS [Suspect]
     Active Substance: CARFILZOMIB
     Indication: PLASMA CELL MYELOMA
     Dosage: UNK, 2 TIMES/WK
     Route: 042
     Dates: start: 201411

REACTIONS (12)
  - Pneumonia [Recovered/Resolved]
  - Mobility decreased [Recovered/Resolved]
  - Cognitive disorder [Unknown]
  - Clostridium difficile infection [Unknown]
  - Abasia [Not Recovered/Not Resolved]
  - Confusional state [Recovered/Resolved]
  - Fatigue [Unknown]
  - Insomnia [Unknown]
  - Disorientation [Unknown]
  - Fall [Unknown]
  - Memory impairment [Unknown]
  - Swelling face [Unknown]

NARRATIVE: CASE EVENT DATE: 201411
